FAERS Safety Report 5648227-5 (Version None)
Quarter: 2008Q1

REPORT INFORMATION
  Report Type: 
  Country: None (occurrence: None)
  Receive Date: 20080304
  Receipt Date: 20080226
  Transmission Date: 20080703
  Serious: Yes (Hospitalization)
  Sender: FDA-Public Use
  Company Number: CH-BRISTOL-MYERS SQUIBB COMPANY-14090914

PATIENT
  Age: 75 Year
  Sex: Female

DRUGS (6)
  1. TRITTICO [Suspect]
     Dosage: 100 MG TABLETS
     Route: 048
     Dates: start: 20080107, end: 20080121
  2. DILATREND [Concomitant]
     Dates: end: 20080122
  3. STILNOX [Concomitant]
  4. NORVASC [Concomitant]
  5. TOREM [Concomitant]
  6. ATACAND [Concomitant]

REACTIONS (2)
  - AMNESIA [None]
  - MONOPLEGIA [None]
